FAERS Safety Report 14462902 (Version 1)
Quarter: 2018Q1

REPORT INFORMATION
  Report Type: Other
  Country: US (occurrence: US)
  Receive Date: 20180130
  Receipt Date: 20180130
  Transmission Date: 20180509
  Serious: Yes (Hospitalization)
  Sender: FDA-Public Use
  Company Number: US-ACORDA-ACO_145550_2017

PATIENT
  Age: 52 Year
  Sex: Female
  Weight: 78.91 kg

DRUGS (3)
  1. AMPYRA [Suspect]
     Active Substance: DALFAMPRIDINE
     Indication: GAIT DISTURBANCE
     Dosage: 10 MG, BID
     Route: 048
  2. AMPYRA [Suspect]
     Active Substance: DALFAMPRIDINE
     Indication: MULTIPLE SCLEROSIS
  3. COPAXONE [Suspect]
     Active Substance: GLATIRAMER ACETATE
     Indication: MULTIPLE SCLEROSIS
     Dosage: UNK
     Route: 065

REACTIONS (10)
  - Fall [Recovering/Resolving]
  - Central nervous system lesion [Unknown]
  - Balance disorder [Recovering/Resolving]
  - Pain [Recovering/Resolving]
  - Limb injury [Recovering/Resolving]
  - Joint injury [Recovering/Resolving]
  - Multiple sclerosis relapse [Not Recovered/Not Resolved]
  - Chest injury [Recovering/Resolving]
  - Haemarthrosis [Recovering/Resolving]
  - Insomnia [Unknown]

NARRATIVE: CASE EVENT DATE: 20171216
